FAERS Safety Report 9605566 (Version 1)
Quarter: 2013Q4

REPORT INFORMATION
  Report Type: Spontaneous
  Country: US (occurrence: US)
  Receive Date: 20131008
  Receipt Date: 20131008
  Transmission Date: 20140711
  Serious: No
  Sender: FDA-Public Use
  Company Number: US-PFIZER INC-2013285824

PATIENT
  Age: 22 Year
  Sex: Female
  Weight: 56.69 kg

DRUGS (1)
  1. DEPO-PROVERA [Suspect]
     Indication: CONTRACEPTION
     Dosage: UNK
     Dates: start: 2012

REACTIONS (1)
  - Menorrhagia [Not Recovered/Not Resolved]
